FAERS Safety Report 11047622 (Version 1)
Quarter: 2015Q2

REPORT INFORMATION
  Report Type: Spontaneous
  Country: IT (occurrence: IT)
  Receive Date: 20150420
  Receipt Date: 20150420
  Transmission Date: 20150821
  Serious: Yes (Hospitalization)
  Sender: FDA-Public Use
  Company Number: IT-PFIZER INC-2015128944

PATIENT
  Age: 67 Year
  Sex: Female

DRUGS (8)
  1. XALKORI [Suspect]
     Active Substance: CRIZOTINIB
     Dosage: 500 MG, DAILY
     Route: 048
     Dates: start: 20140623, end: 20140626
  2. LASIX [Concomitant]
     Active Substance: FUROSEMIDE
     Indication: HYPERTENSIVE CARDIOMYOPATHY
     Dosage: 50 MG, UNK
     Route: 048
     Dates: start: 20140520, end: 20140626
  3. ALDACTONE [Concomitant]
     Active Substance: SPIRONOLACTONE
     Dosage: 50 MG, UNK
     Route: 048
     Dates: start: 20140520, end: 20140626
  4. STILNOX [Concomitant]
     Active Substance: ZOLPIDEM TARTRATE
  5. METFORMIN [Concomitant]
     Active Substance: METFORMIN HYDROCHLORIDE
     Indication: DIABETES MELLITUS
  6. XALKORI [Suspect]
     Active Substance: CRIZOTINIB
     Indication: LUNG ADENOCARCINOMA
     Dosage: UNK
     Route: 048
     Dates: start: 20140310, end: 20140527
  7. VALSARTAN. [Concomitant]
     Active Substance: VALSARTAN
     Indication: HYPERTENSION
     Dosage: 160 MG, UNK
     Route: 048
     Dates: start: 20140520, end: 20140709
  8. LANSOX [Concomitant]
     Active Substance: LANSOPRAZOLE
     Indication: PROPHYLAXIS AGAINST GASTROINTESTINAL ULCER
     Dosage: 30 MG, UNK
     Route: 048
     Dates: start: 20140520, end: 20140709

REACTIONS (6)
  - Hypokalaemia [Recovering/Resolving]
  - Skin reaction [Recovering/Resolving]
  - Erythema [Unknown]
  - Oedema peripheral [Recovering/Resolving]
  - Pruritus [Recovering/Resolving]
  - Acute kidney injury [Recovering/Resolving]

NARRATIVE: CASE EVENT DATE: 20140626
